FAERS Safety Report 15843296 (Version 1)
Quarter: 2019Q1

REPORT INFORMATION
  Report Type: Spontaneous
  Country: FR (occurrence: FR)
  Receive Date: 20190118
  Receipt Date: 20190118
  Transmission Date: 20190417
  Serious: Yes (Life-Threatening, Hospitalization)
  Sender: FDA-Public Use
  Company Number: FR-MYLANLABS-2019M1002068

PATIENT
  Age: 48 Year
  Sex: Female

DRUGS (4)
  1. METHADONE [Suspect]
     Active Substance: METHADONE HYDROCHLORIDE
     Dosage: TOXIC INTAKE
     Route: 048
  2. METHADONE [Suspect]
     Active Substance: METHADONE HYDROCHLORIDE
     Dosage: SECOND TOXIC INTAKE
     Route: 048
  3. PAROXETINE. [Concomitant]
     Active Substance: PAROXETINE
     Indication: DEPRESSION
     Route: 065
  4. METHADONE [Suspect]
     Active Substance: METHADONE HYDROCHLORIDE
     Indication: DRUG DEPENDENCE
     Dosage: 18 MILLIGRAM, QD
     Route: 048

REACTIONS (5)
  - Toxic leukoencephalopathy [Recovering/Resolving]
  - Poisoning deliberate [Recovered/Resolved]
  - Cardio-respiratory arrest [Recovered/Resolved]
  - Neurological decompensation [Recovered/Resolved]
  - Coma [Recovered/Resolved]
